FAERS Safety Report 12910316 (Version 3)
Quarter: 2016Q4

REPORT INFORMATION
  Report Type: Report from Study
  Country: DE (occurrence: DE)
  Receive Date: 20161104
  Receipt Date: 20161117
  Transmission Date: 20170207
  Serious: Yes (Death, Hospitalization, Other)
  Sender: FDA-Public Use
  Company Number: PHHY2013DE133103

PATIENT
  Sex: Female
  Weight: 72.7 kg

DRUGS (2)
  1. AROMASIN [Suspect]
     Active Substance: EXEMESTANE
     Indication: BREAST CANCER METASTATIC
     Dosage: 25 MG, QD
     Route: 048
     Dates: start: 20130906, end: 20131218
  2. AFINITOR [Suspect]
     Active Substance: EVEROLIMUS
     Indication: BREAST CANCER METASTATIC
     Dosage: 5 MG, QD
     Route: 048
     Dates: start: 20130906, end: 20131218

REACTIONS (14)
  - Malignant neoplasm progression [Fatal]
  - General physical health deterioration [Fatal]
  - Upper gastrointestinal haemorrhage [Recovered/Resolved]
  - Urinary tract infection [Recovered/Resolved]
  - Anaemia [Recovered/Resolved]
  - Urinary tract infection [Recovered/Resolved]
  - Diarrhoea [Recovered/Resolved]
  - Urinary tract infection [Recovered/Resolved]
  - Varices oesophageal [Unknown]
  - Ascites [Recovered/Resolved]
  - Ascites [Fatal]
  - Gastrointestinal haemorrhage [Recovered/Resolved]
  - Platelet count decreased [Unknown]
  - Jaundice [Fatal]

NARRATIVE: CASE EVENT DATE: 20131021
